FAERS Safety Report 7639298-5 (Version None)
Quarter: 2011Q3

REPORT INFORMATION
  Report Type: 
  Country: None (occurrence: None)
  Receive Date: 20110727
  Receipt Date: 20110718
  Transmission Date: 20111222
  Serious: Yes (Other)
  Sender: FDA-Public Use
  Company Number: PHHY2011TR64623

PATIENT
  Sex: Female

DRUGS (2)
  1. PAROL [Concomitant]
  2. ZOLEDRONOC ACID [Suspect]
     Indication: OSTEOPOROSIS
     Dosage: 5 MG,
     Route: 042
     Dates: start: 20110704

REACTIONS (2)
  - CHEST PAIN [None]
  - ABDOMINAL PAIN UPPER [None]
